FAERS Safety Report 5956025-8 (Version None)
Quarter: 2008Q4

REPORT INFORMATION
  Report Type: 
  Country: None (occurrence: None)
  Receive Date: 20081112
  Receipt Date: 20081031
  Transmission Date: 20090506
  Serious: Yes (Hospitalization)
  Sender: FDA-Public Use
  Company Number: US024960

PATIENT
  Age: 67 Year
  Sex: Male

DRUGS (4)
  1. MODAFINIL [Suspect]
     Indication: HYPERSOMNIA
     Dosage: 200 MG QD ORAL
     Route: 048
  2. MODAFINIL [Suspect]
     Indication: HYPERSOMNIA
     Dosage: 150 MG QD ORAL
     Route: 048
  3. MODAFINIL [Suspect]
     Indication: HYPERSOMNIA
     Dosage: 100 MG QD ORAL
     Route: 048
     Dates: start: 20080101
  4. MODAFINIL [Suspect]
     Indication: HYPERSOMNIA
     Dosage: 150 MG QD ORAL
     Route: 048
     Dates: start: 20080101

REACTIONS (3)
  - AGITATION [None]
  - NERVOUSNESS [None]
  - WITHDRAWAL SYNDROME [None]
